FAERS Safety Report 8988197 (Version 1)
Quarter: 2012Q4

REPORT INFORMATION
  Report Type: 
  Country: FR (occurrence: FR)
  Receive Date: 20121227
  Receipt Date: 20121227
  Transmission Date: 20130627
  Serious: Yes (Hospitalization)
  Sender: FDA-Public Use
  Company Number: FR-PFIZER INC-2012326448

PATIENT
  Age: 86 Year
  Sex: Female

DRUGS (7)
  1. EUPANTOL [Suspect]
     Dosage: UNK
     Route: 048
     Dates: end: 20121002
  2. FUROSEMIDE [Suspect]
     Dosage: UNK
     Route: 048
     Dates: end: 20121002
  3. POTASSIUM CHLORIDE [Suspect]
     Dosage: UNK
     Route: 048
     Dates: end: 20121002
  4. FOLIC ACID [Suspect]
     Dosage: UNK
     Route: 048
     Dates: end: 20121002
  5. DIGOXIN [Suspect]
     Dosage: UNK
     Route: 048
     Dates: end: 20121002
  6. PAROXETIN [Suspect]
     Dosage: UNK
     Route: 048
     Dates: end: 20121002
  7. PRADAXA [Suspect]
     Dosage: UNK
     Route: 048
     Dates: end: 20121002

REACTIONS (3)
  - Dehydration [Recovered/Resolved]
  - Hypernatraemia [Recovered/Resolved]
  - Renal failure [Recovered/Resolved]
